FAERS Safety Report 5306767-2 (Version None)
Quarter: 2007Q1

REPORT INFORMATION
  Report Type: 
  Country: None (occurrence: None)
  Receive Date: 20070201
  Receipt Date: 20061207
  Transmission Date: 20070707
  Serious: No
  Sender: FDA-Public Use
  Company Number: 2006PV026550

PATIENT
  Age: 65 Year
  Sex: Male
  Weight: 104.3273 kg

DRUGS (1)
  1. BYETTA [Suspect]
     Indication: GLUCOSE TOLERANCE IMPAIRED
     Dosage: 5 MCG BID SC
     Route: 058
     Dates: start: 20061030

REACTIONS (7)
  - BLOOD CHOLESTEROL INCREASED [None]
  - BLOOD CREATININE INCREASED [None]
  - BLOOD TRIGLYCERIDES INCREASED [None]
  - BLOOD UREA INCREASED [None]
  - FEELING JITTERY [None]
  - HIGH DENSITY LIPOPROTEIN DECREASED [None]
  - NAUSEA [None]
